FAERS Safety Report 17683839 (Version 7)
Quarter: 2020Q3

REPORT INFORMATION
  Report Type: Other
  Country: GR (occurrence: GR)
  Receive Date: 20200420
  Receipt Date: 20200924
  Transmission Date: 20201105
  Serious: Yes (Death, Hospitalization, Other)
  Sender: FDA-Public Use
  Company Number: GR-ROCHE-2585811

PATIENT
  Age: 83 Year
  Sex: Female

DRUGS (2)
  1. BENDAMUSTINE [Suspect]
     Active Substance: BENDAMUSTINE
     Indication: PRODUCT USED FOR UNKNOWN INDICATION
     Route: 065
  2. POLATUZUMAB VEDOTIN. [Suspect]
     Active Substance: POLATUZUMAB VEDOTIN
     Indication: PRODUCT USED FOR UNKNOWN INDICATION
     Route: 065
     Dates: start: 20200109, end: 20200305

REACTIONS (8)
  - Asthenia [Fatal]
  - Anaemia [Fatal]
  - Thrombocytopenia [Fatal]
  - Febrile neutropenia [Fatal]
  - Renal failure [Fatal]
  - Leukopenia [Fatal]
  - Pancytopenia [Unknown]
  - Pyrexia [Recovered/Resolved]

NARRATIVE: CASE EVENT DATE: 20200403
